FAERS Safety Report 20864499 (Version 1)
Quarter: 2022Q2

REPORT INFORMATION
  Report Type: Report from Study
  Country: MX (occurrence: MX)
  Receive Date: 20220524
  Receipt Date: 20220524
  Transmission Date: 20220721
  Serious: Yes (Other)
  Sender: FDA-Public Use
  Company Number: MX-NOVARTISPH-NVSC2022MX117585

PATIENT
  Sex: Female
  Weight: 80 kg

DRUGS (5)
  1. DIOVAN [Suspect]
     Active Substance: VALSARTAN
     Indication: Blood pressure increased
     Dosage: 1 DOSAGE FORM (80 MG), QD (AT 8 AT NIGHT)
     Route: 048
  2. DIOVAN [Suspect]
     Active Substance: VALSARTAN
     Dosage: 1 DOSAGE FORM, BID (AT 8 IN THE MORNING AND AT 9 AT NIGHT)
     Route: 048
  3. METOPROLOL [Suspect]
     Active Substance: METOPROLOL
     Indication: Blood pressure increased
     Dosage: 1 DOSAGE FORM (100 MG), QD (IN THE MORNING)
     Route: 048
     Dates: end: 20220322
  4. JANUMET [Concomitant]
     Active Substance: METFORMIN HYDROCHLORIDE\SITAGLIPTIN PHOSPHATE
     Indication: Diabetes mellitus
     Dosage: 1 DOSAGE FORM (50/850 MG), QD (ABOUT 10 YEARS AGO)
     Route: 048
  5. JANUMET [Concomitant]
     Active Substance: METFORMIN HYDROCHLORIDE\SITAGLIPTIN PHOSPHATE
     Dosage: 1 DOSAGE FORM (50/850 MG), BID (IN THE MORNING AND AT NIGHT)
     Route: 048

REACTIONS (8)
  - Blood pressure increased [Recovering/Resolving]
  - Malaise [Unknown]
  - Tremor [Unknown]
  - Gait inability [Unknown]
  - Blood glucose increased [Unknown]
  - Blood triglycerides increased [Unknown]
  - Overweight [Unknown]
  - Fatigue [Unknown]
